FAERS Safety Report 5232527-7 (Version None)
Quarter: 2007Q1

REPORT INFORMATION
  Report Type: 
  Country: None (occurrence: None)
  Receive Date: 20070207
  Receipt Date: 20070205
  Transmission Date: 20070707
  Serious: Yes (Hospitalization)
  Sender: FDA-Public Use
  Company Number: US-GLAXOSMITHKLINE-A0638328A

PATIENT
  Age: 56 Year
  Sex: Male

DRUGS (7)
  1. COREG [Suspect]
     Dosage: 25MG TWICE PER DAY
     Route: 048
     Dates: start: 20010101
  2. UNKNOWN MEDICATION [Concomitant]
  3. ENALAPRIL MALEATE [Concomitant]
  4. GEMFIBROZIL [Concomitant]
  5. ZOCOR [Concomitant]
  6. PRILOSEC [Concomitant]
  7. CHEMOTHERAPY [Concomitant]

REACTIONS (4)
  - BLOOD GLUCOSE INCREASED [None]
  - CARDIAC PACEMAKER INSERTION [None]
  - GLUCOSE TOLERANCE IMPAIRED [None]
  - IMPLANTABLE DEFIBRILLATOR INSERTION [None]
